FAERS Safety Report 22624604 (Version 1)
Quarter: 2023Q2

REPORT INFORMATION
  Report Type: Spontaneous
  Country: CA (occurrence: None)
  Receive Date: 20230621
  Receipt Date: 20230621
  Transmission Date: 20230722
  Serious: Yes (Other)
  Sender: FDA-Public Use
  Company Number: CA-ROCHE-3369169

PATIENT
  Sex: Male

DRUGS (1)
  1. AVASTIN [Suspect]
     Active Substance: BEVACIZUMAB
     Indication: Neovascular age-related macular degeneration
     Route: 065

REACTIONS (5)
  - Blindness unilateral [Unknown]
  - Eye injury [Unknown]
  - Retinal oedema [Unknown]
  - Drug ineffective [Unknown]
  - Off label use [Unknown]
